FAERS Safety Report 6388541-1 (Version None)
Quarter: 2009Q4

REPORT INFORMATION
  Report Type: 
  Country: None (occurrence: None)
  Receive Date: 20091005
  Receipt Date: 20091001
  Transmission Date: 20100525
  Serious: Yes (Hospitalization, Other)
  Sender: FDA-Public Use
  Company Number: US-TEVA-202613USA

PATIENT
  Sex: Female

DRUGS (5)
  1. PROPOFOL [Suspect]
     Indication: ANAESTHESIA
     Dosage: 30 MCG/KG/HR
     Route: 042
     Dates: start: 20090710, end: 20090701
  2. ATENOLOL [Concomitant]
     Route: 048
  3. AMLODIPINE [Concomitant]
     Indication: HYPERTENSION
     Route: 048
  4. LEVOTHYROXINE SODIUM [Concomitant]
     Indication: HYPOTHYROIDISM
     Route: 048
  5. POTASSIUM CHLORIDE [Concomitant]
     Indication: HYPOKALAEMIA
     Route: 048

REACTIONS (6)
  - KLEBSIELLA INFECTION [None]
  - NERVOUS SYSTEM DISORDER [None]
  - PYREXIA [None]
  - RESPIRATORY DISTRESS [None]
  - SOMNOLENCE [None]
  - STAPHYLOCOCCAL INFECTION [None]
